FAERS Safety Report 14709031 (Version 1)
Quarter: 2018Q2

REPORT INFORMATION
  Report Type: Spontaneous
  Country: GB (occurrence: GB)
  Receive Date: 20180403
  Receipt Date: 20180403
  Transmission Date: 20180711
  Serious: Yes (Hospitalization)
  Sender: FDA-Public Use
  Company Number: GB-JNJFOC-20180336570

PATIENT
  Sex: Female

DRUGS (8)
  1. SERTRALINE [Concomitant]
     Active Substance: SERTRALINE HYDROCHLORIDE
     Route: 065
  2. DUROGESIC D-TRANS [Suspect]
     Active Substance: FENTANYL
     Indication: BONE TUBERCULOSIS
     Route: 065
     Dates: start: 2008
  3. ESOMEPRAZOLE [Concomitant]
     Active Substance: ESOMEPRAZOLE
     Route: 065
  4. ALCOHOL. [Interacting]
     Active Substance: ALCOHOL
     Indication: PRODUCT USED FOR UNKNOWN INDICATION
     Route: 065
  5. DIAZEPAM. [Concomitant]
     Active Substance: DIAZEPAM
     Dosage: AT NIGHT
     Route: 065
  6. AMITRIPTYLINE [Concomitant]
     Active Substance: AMITRIPTYLINE
     Route: 065
  7. BACLOFEN. [Concomitant]
     Active Substance: BACLOFEN
     Route: 065
  8. ACETAMINOPHEN AND CODEINE [Concomitant]
     Active Substance: ACETAMINOPHEN\CODEINE PHOSPHATE
     Dosage: 500 MG PARACETAMOL AND 30 MG CODEINE
     Route: 065

REACTIONS (7)
  - Alcohol interaction [Unknown]
  - Dizziness [Unknown]
  - Speech disorder [Unknown]
  - Syncope [Unknown]
  - Tonic clonic movements [Unknown]
  - Feeling abnormal [Unknown]
  - Seizure [Unknown]
